FAERS Safety Report 17792193 (Version 1)
Quarter: 2020Q3

REPORT INFORMATION
  Report Type: Report from Study
  Country: UA (occurrence: UA)
  Receive Date: 20200515
  Receipt Date: 20200515
  Transmission Date: 20201104
  Serious: Yes (Other)
  Sender: FDA-Public Use
  Company Number: UA-CELGENEUS-UKR-20190605587

PATIENT
  Age: 39 Year
  Sex: Male
  Weight: 80 kg

DRUGS (1)
  1. OZANIMOD. [Suspect]
     Active Substance: OZANIMOD
     Indication: MULTIPLE SCLEROSIS
     Route: 048
     Dates: start: 20161031, end: 20190712

REACTIONS (1)
  - Seminoma [Not Recovered/Not Resolved]

NARRATIVE: CASE EVENT DATE: 201905
